FAERS Safety Report 5022863-1 (Version None)
Quarter: 2006Q2

REPORT INFORMATION
  Report Type: 
  Country: None (occurrence: None)
  Receive Date: 20060426
  Receipt Date: 20060322
  Transmission Date: 20061013
  Serious: Yes (Other)
  Sender: FDA-Public Use
  Company Number: 2006041507

PATIENT
  Age: 70 Year
  Sex: Male
  Weight: 87.0906 kg

DRUGS (9)
  1. LYRICA [Suspect]
     Indication: BACK PAIN
     Dosage: 150 MG (75 MG,2 IN 1 D),ORAL
     Route: 048
     Dates: start: 20060321, end: 20060322
  2. LYRICA [Suspect]
     Indication: SCIATICA
     Dosage: 150 MG (75 MG,2 IN 1 D),ORAL
     Route: 048
     Dates: start: 20060321, end: 20060322
  3. METFORMIN [Concomitant]
  4. HYDROCODONE BITARTRATE [Concomitant]
  5. NORVASC [Concomitant]
  6. VALSARTAN [Concomitant]
  7. LIPITOR [Concomitant]
  8. PROTONIX [Concomitant]
  9. NIASPAN [Concomitant]

REACTIONS (7)
  - DIZZINESS [None]
  - HYPERTENSION [None]
  - HYPOTENSION [None]
  - MYALGIA [None]
  - NAUSEA [None]
  - SOMNOLENCE [None]
  - UNEVALUABLE EVENT [None]
